FAERS Safety Report 9220861 (Version 1)
Quarter: 2013Q2

REPORT INFORMATION
  Report Type: Spontaneous
  Country: AU (occurrence: AU)
  Receive Date: 20130409
  Receipt Date: 20130409
  Transmission Date: 20140414
  Serious: Yes (Hospitalization, Other)
  Sender: FDA-Public Use
  Company Number: AU-CELGENEUS-008-C4047-13011707

PATIENT
  Age: 76 Year
  Sex: Female

DRUGS (2)
  1. CC-4047 [Suspect]
     Indication: PLASMA CELL MYELOMA
     Dosage: 4 MILLIGRAM
     Route: 048
     Dates: start: 201301
  2. CC-4047 [Suspect]
     Route: 065

REACTIONS (3)
  - Bradycardia [Not Recovered/Not Resolved]
  - Back pain [Unknown]
  - Constipation [Unknown]
